FAERS Safety Report 15888036 (Version 1)
Quarter: 2019Q1

REPORT INFORMATION
  Report Type: Spontaneous
  Country: DE (occurrence: DE)
  Receive Date: 20190130
  Receipt Date: 20190130
  Transmission Date: 20190417
  Serious: Yes (Hospitalization)
  Sender: FDA-Public Use
  Company Number: DE-ACCORD-104130

PATIENT
  Age: 77 Year
  Sex: Female
  Weight: 87.4 kg

DRUGS (14)
  1. APIXABAN [Suspect]
     Active Substance: APIXABAN
     Indication: PRODUCT USED FOR UNKNOWN INDICATION
     Dosage: 2.5 MG, 1-0-1-0, TABLETS
     Route: 048
  2. BISOPROLOL [Concomitant]
     Active Substance: BISOPROLOL
     Dosage: 2.5 MG, 1-0-1-0, TABLETS
     Route: 048
  3. SIMVASTATIN. [Concomitant]
     Active Substance: SIMVASTATIN
     Dosage: 20 MG, 0-0-1-0, TABLETS
     Route: 048
  4. TORASEMIDE [Concomitant]
     Active Substance: TORSEMIDE
     Dosage: 20 MG, 1-0-1-0, TABLETS
     Route: 048
  5. CLOPIDOGREL [Suspect]
     Active Substance: CLOPIDOGREL BISULFATE
     Indication: PRODUCT USED FOR UNKNOWN INDICATION
     Dosage: 75 MG, 1-0-0-0, TABLETS
     Route: 048
  6. ACETYLSALICYLIC ACID [Suspect]
     Active Substance: ASPIRIN
     Indication: PRODUCT USED FOR UNKNOWN INDICATION
     Dosage: 100 MG, 1-0-0-0, TABLETS
     Route: 048
  7. PREDNISOLONE. [Concomitant]
     Active Substance: PREDNISOLONE
     Dosage: 1 MG, 1-0-0-0, TABLETS
     Route: 048
  8. LEVOTHYROXINE. [Concomitant]
     Active Substance: LEVOTHYROXINE
     Dosage: 50 MICROGRAM, 1-0-0-0, TABLETS
     Route: 048
  9. ISOPHANE INSULIN [Concomitant]
     Active Substance: INSULIN NOS
     Dosage: 14 IE, 1-0-0-0, 1-0-0-0, INJECTION / INFUSION SOLUTION
     Route: 058
  10. TIMOLOL. [Concomitant]
     Active Substance: TIMOLOL
     Dosage: 1 GTT, 1-0-0-0, DROPS
     Route: 031
  11. XIPAMIDE [Concomitant]
     Active Substance: XIPAMIDE
     Dosage: 10 MG, 1-0-0-0, TABLETS
     Route: 048
  12. FENTANYL. [Concomitant]
     Active Substance: FENTANYL
     Dosage: 62 MICROGRAM, TRANSDERMAL PATCH
     Route: 062
  13. PANTOPRAZOLE [Concomitant]
     Active Substance: PANTOPRAZOLE
     Dosage: 40 MG, 1-0-0-0, TABLETS
     Route: 048
  14. MOLSIDOMINE [Concomitant]
     Active Substance: MOLSIDOMINE
     Dosage: 8 MG, 1-0-0-0, TABLETS
     Route: 048

REACTIONS (5)
  - Dyspnoea [Unknown]
  - Gastrointestinal haemorrhage [Unknown]
  - Haematochezia [Unknown]
  - Anaemia [Unknown]
  - Angina pectoris [Unknown]
